FAERS Safety Report 23196882 (Version 1)
Quarter: 2023Q4

REPORT INFORMATION
  Report Type: Report from Study
  Country: MX (occurrence: None)
  Receive Date: 20231117
  Receipt Date: 20231117
  Transmission Date: 20240110
  Serious: Yes (Death, Disabling, Other)
  Sender: FDA-Public Use
  Company Number: 2023A261031

PATIENT
  Age: 25079 Day
  Sex: Female

DRUGS (1)
  1. CRESTOR [Suspect]
     Active Substance: ROSUVASTATIN CALCIUM
     Route: 048

REACTIONS (8)
  - Death [Fatal]
  - Paralysis [Recovered/Resolved]
  - Blindness [Recovered/Resolved]
  - Gait inability [Recovered/Resolved]
  - Neoplasm malignant [Unknown]
  - Cerebrovascular accident [Unknown]
  - Blood triglycerides abnormal [Unknown]
  - Cardiovascular disorder [Unknown]

NARRATIVE: CASE EVENT DATE: 20230710
